APPROVED DRUG PRODUCT: OXYCODONE AND ACETAMINOPHEN
Active Ingredient: ACETAMINOPHEN; OXYCODONE HYDROCHLORIDE
Strength: 325MG/5ML;5MG/5ML
Dosage Form/Route: SOLUTION;ORAL
Application: A201448 | Product #001
Applicant: SANKALP LIFECARE INC
Approved: Aug 26, 2021 | RLD: No | RS: No | Type: DISCN